FAERS Safety Report 8976363 (Version 1)
Quarter: 2012Q4

REPORT INFORMATION
  Report Type: 
  Country: BR (occurrence: BR)
  Receive Date: 20121220
  Receipt Date: 20121220
  Transmission Date: 20130627
  Serious: Yes (Life-Threatening, Hospitalization, Other)
  Sender: FDA-Public Use
  Company Number: PHHY2012BR116867

PATIENT
  Sex: Female
  Weight: 61 kg

DRUGS (3)
  1. DIOVAN [Suspect]
     Indication: DIABETES MELLITUS
  2. NATRILIX [Concomitant]
  3. VASOPRIL [Concomitant]

REACTIONS (4)
  - Diabetes mellitus [Recovering/Resolving]
  - Urinary tract infection [Recovered/Resolved]
  - Renal disorder [Unknown]
  - Oedema peripheral [Unknown]
